FAERS Safety Report 7013646 (Version 2)
Quarter: 2014Q3

REPORT INFORMATION
  Report Type: Spontaneous
  Country: US (occurrence: None)
  Receive Date: 20090526
  Receipt Date: 20140919
  Transmission Date: 20150326
  Serious: Yes (Other)
  Sender: FDA-Public Use
  Company Number: 2009S1004142

PATIENT
  Age: 72 Year
  Sex: Female

DRUGS (6)
  1. CALCIUM [Concomitant]
     Active Substance: CALCIUM
  2. PHOSPHO-SODA [Suspect]
     Active Substance: SODIUM PHOSPHATE, DIBASIC\SODIUM PHOSPHATE, MONOBASIC
     Indication: COLONOSCOPY
     Dosage: PO
     Route: 048
     Dates: start: 20080306
  3. NORVASC [Concomitant]
     Active Substance: AMLODIPINE BESYLATE
  4. AVAPRO [Concomitant]
     Active Substance: IRBESARTAN
  5. HYDROCHLOROTHIAZIDE. [Concomitant]
     Active Substance: HYDROCHLOROTHIAZIDE
  6. ASPIRIN (ACETYLSALICYLIC ACID) [Concomitant]
     Active Substance: ASPIRIN

REACTIONS (7)
  - Renal failure acute [None]
  - Nausea [None]
  - Anaemia [None]
  - Renal failure chronic [None]
  - Vomiting [None]
  - Renal impairment [None]
  - Renal osteodystrophy [None]

NARRATIVE: CASE EVENT DATE: 20080320
